FAERS Safety Report 8212705-5 (Version None)
Quarter: 2012Q1

REPORT INFORMATION
  Report Type: 
  Country: None (occurrence: None)
  Receive Date: 20120315
  Receipt Date: 20120312
  Transmission Date: 20120608
  Serious: No
  Sender: FDA-Public Use
  Company Number: US-PFIZER INC-2012065246

PATIENT
  Sex: Female
  Weight: 57.143 kg

DRUGS (1)
  1. FLECTOR [Suspect]
     Indication: ARTHRALGIA
     Dosage: UNK, 2X/DAY
     Dates: start: 20120309

REACTIONS (2)
  - DRUG INEFFECTIVE [None]
  - PRODUCT SIZE ISSUE [None]
